FAERS Safety Report 18684126 (Version 1)
Quarter: 2020Q4

REPORT INFORMATION
  Report Type: Spontaneous
  Country: US (occurrence: US)
  Receive Date: 20201230
  Receipt Date: 20201230
  Transmission Date: 20210114
  Serious: Yes (Hospitalization)
  Sender: FDA-Public Use
  Company Number: US-MYLANLABS-2020M1106203

PATIENT
  Age: 42 Year
  Sex: Male

DRUGS (11)
  1. PEGFILGRASTIM [Suspect]
     Active Substance: PEGFILGRASTIM
     Indication: CENTRAL NERVOUS SYSTEM LEUKAEMIA
  2. MITOXANTRONE [Concomitant]
     Active Substance: MITOXANTRONE HYDROCHLORIDE
     Indication: CENTRAL NERVOUS SYSTEM LEUKAEMIA
  3. FILGRASTIM [Suspect]
     Active Substance: FILGRASTIM
     Indication: CENTRAL NERVOUS SYSTEM LEUKAEMIA
  4. CYTARABINE. [Concomitant]
     Active Substance: CYTARABINE
     Indication: CENTRAL NERVOUS SYSTEM LEUKAEMIA
     Dosage: 3 G/M2 IN JAN 2018 AND MAR 2018
     Route: 065
     Dates: start: 2018
  5. PEGFILGRASTIM [Suspect]
     Active Substance: PEGFILGRASTIM
     Indication: ACUTE MYELOID LEUKAEMIA
     Route: 065
  6. MITOXANTRONE [Concomitant]
     Active Substance: MITOXANTRONE HYDROCHLORIDE
     Indication: ACUTE MYELOID LEUKAEMIA
     Dosage: 10 G/M2; AS A PART OF CLAG-M REGIMEN
     Route: 065
     Dates: start: 201712
  7. FILGRASTIM [Suspect]
     Active Substance: FILGRASTIM
     Indication: ACUTE MYELOID LEUKAEMIA
     Dosage: AS A PART OF CLAG-M REGIMEN
     Route: 065
     Dates: start: 201712
  8. CYTARABINE. [Concomitant]
     Active Substance: CYTARABINE
     Indication: ACUTE MYELOID LEUKAEMIA
     Dosage: 2 G/M2; AS A PART OF CLAG-M REGIMEN; SAME DOSE IN FEB 2018
     Route: 065
     Dates: start: 201712
  9. CLADRIBINE. [Concomitant]
     Active Substance: CLADRIBINE
     Indication: CENTRAL NERVOUS SYSTEM LEUKAEMIA
  10. CYTARABINE. [Suspect]
     Active Substance: CYTARABINE
     Indication: LANGERHANS CELL SARCOMA
     Dosage: 100 MILLIGRAM/SQ. METER, QD ADMINISTERED...
     Route: 042
     Dates: start: 201705
  11. CLADRIBINE. [Concomitant]
     Active Substance: CLADRIBINE
     Indication: ACUTE MYELOID LEUKAEMIA
     Dosage: 5 G/M2; AS A PART OF CLAG-M REGIMEN
     Route: 065
     Dates: start: 201712

REACTIONS (3)
  - Diplopia [Unknown]
  - Off label use [Unknown]
  - Dysplasia [Unknown]

NARRATIVE: CASE EVENT DATE: 201710
